FAERS Safety Report 9787568 (Version 2)
Quarter: 2013Q4

REPORT INFORMATION
  Report Type: Spontaneous
  Country: US (occurrence: US)
  Receive Date: 20131230
  Receipt Date: 20131230
  Transmission Date: 20140711
  Serious: Yes (Other)
  Sender: FDA-Public Use
  Company Number: US-ACCORD-020981

PATIENT
  Age: 7 Year
  Sex: 0

DRUGS (3)
  1. ETOPOSIDE [Suspect]
     Indication: ACUTE LYMPHOCYTIC LEUKAEMIA
     Dosage: #PRIOR THERAPY COURSES 2
     Route: 042
  2. CLOFARABINE [Suspect]
     Indication: ACUTE LYMPHOCYTIC LEUKAEMIA
     Dosage: #PRIOR THERAPY COURSES 2
     Route: 042
  3. CYCLOPHOSPHAMIDE [Suspect]
     Indication: ACUTE LYMPHOCYTIC LEUKAEMIA
     Dosage: #PRIOR THERAPY COURSES 2
     Route: 042

REACTIONS (2)
  - Osteomyelitis [Unknown]
  - Off label use [Unknown]
